FAERS Safety Report 5262261-9 (Version None)
Quarter: 2007Q1

REPORT INFORMATION
  Report Type: 
  Country: None (occurrence: None)
  Receive Date: 20070308
  Receipt Date: 20070308
  Transmission Date: 20070707
  Serious: Yes (Disabling, Other)
  Sender: FDA-Public Use
  Company Number: None

PATIENT
  Age: 54 Year
  Sex: Female
  Weight: 63.5036 kg

DRUGS (2)
  1. CLINDAMYCIN [Suspect]
     Indication: PERIODONTAL OPERATION
     Dosage: 3 TIMES A DAY EVERY 8 HOURS PO
     Route: 048
     Dates: start: 20070125, end: 20070131
  2. CLINDAMYCIN [Suspect]
     Indication: POST PROCEDURAL INFECTION
     Dosage: 3 TIMES A DAY EVERY 8 HOURS PO
     Route: 048
     Dates: start: 20070125, end: 20070131

REACTIONS (2)
  - CLOSTRIDIUM DIFFICILE TOXIN TEST POSITIVE [None]
  - DIARRHOEA [None]
